FAERS Safety Report 7994471-1 (Version None)
Quarter: 2011Q4

REPORT INFORMATION
  Report Type: 
  Country: None (occurrence: None)
  Receive Date: 20111220
  Receipt Date: 20111215
  Transmission Date: 20120403
  Serious: Yes (Hospitalization)
  Sender: FDA-Public Use
  Company Number: IT-B.I. PHARMACEUTICALS,INC./RIDGEFIELD-2011-IT-00301IT

PATIENT
  Sex: Male

DRUGS (4)
  1. TAMSULOSIN HCL [Concomitant]
  2. LIBRADIN [Concomitant]
  3. CATAPRES-TTS-1 [Suspect]
     Indication: HYPERTENSION
     Dosage: 0.3571 MG
     Route: 062
     Dates: start: 20100418, end: 20110418
  4. MICARDIS [Concomitant]

REACTIONS (4)
  - DROP ATTACKS [None]
  - BRADYCARDIA [None]
  - SPINAL FRACTURE [None]
  - SYNCOPE [None]
